FAERS Safety Report 9159258 (Version 1)
Quarter: 2013Q1

REPORT INFORMATION
  Report Type: Spontaneous
  Country: JP (occurrence: None)
  Receive Date: 20130213
  Receipt Date: 20130213
  Transmission Date: 20140127
  Serious: Yes (Other)
  Sender: FDA-Public Use
  Company Number: EUS-2013-00041

PATIENT
  Age: 24 Year
  Sex: Female

DRUGS (5)
  1. ASPARAGINASE (UNSPECIFIED) (ASPARAGINASE) [Suspect]
     Indication: LYMPHOMA
  2. ASPARAGINASE (UNSPECIFIED) (ASPARAGINASE) [Suspect]
     Indication: HEPATOMEGALY
  3. METHOTREXATE (METHOTREXATE) (METHOTREXATE) [Concomitant]
     Indication: HEPATOMEGALY
  4. IFOSFAMIDE (IFOSFAMIDE) (IFOSFAMIDE) [Concomitant]
     Indication: HEPATOMEGALY
  5. DEXAMETHASONE (DEXAMETHASONE) (DEXAMETHASONE) [Concomitant]
     Indication: HEPATOMEGALY

REACTIONS (1)
  - Febrile neutropenia [None]
